FAERS Safety Report 25634689 (Version 1)
Quarter: 2025Q3

REPORT INFORMATION
  Report Type: Spontaneous
  Country: GB (occurrence: GB)
  Receive Date: 20250801
  Receipt Date: 20250801
  Transmission Date: 20251020
  Serious: Yes (Other)
  Sender: ELI LILLY AND COMPANY
  Company Number: GB-MHRA-EMIS-3303-45bfb904-1b05-4ba1-9016-71ca2b127405

PATIENT
  Age: 52 Year
  Sex: Male
  Weight: 120 kg

DRUGS (3)
  1. MOUNJARO [Suspect]
     Active Substance: TIRZEPATIDE
     Indication: Product used for unknown indication
     Dosage: UNK UNK, WEEKLY (1/W)
     Route: 058
  2. MOUNJARO [Suspect]
     Active Substance: TIRZEPATIDE
     Dosage: 5 MG, WEEKLY (1/W)
     Route: 058
  3. SCHERIPROCT [CINCHOCAINE HYDROCHLORIDE;PREDNI [Concomitant]
     Indication: Product used for unknown indication
     Dosage: 30 G, BID
     Dates: start: 20250718

REACTIONS (2)
  - Rectal haemorrhage [Recovering/Resolving]
  - Diarrhoea [Unknown]

NARRATIVE: CASE EVENT DATE: 20250701
